FAERS Safety Report 4767316-0 (Version None)
Quarter: 2005Q3

REPORT INFORMATION
  Report Type: 
  Country: None (occurrence: None)
  Receive Date: 20050913
  Receipt Date: 20050901
  Transmission Date: 20060218
  Serious: Yes (Hospitalization)
  Sender: FDA-Public Use
  Company Number: GB-GLAXOSMITHKLINE-B0392622A

PATIENT
  Age: 68 Year
  Sex: Female

DRUGS (7)
  1. AMOXICILLIN AND CLAVULANATE POTASSIUM [Suspect]
     Indication: URINARY TRACT INFECTION
     Dosage: 375MG THREE TIMES PER DAY
     Route: 048
     Dates: start: 20050810, end: 20050815
  2. WARFARIN [Suspect]
     Indication: ATRIAL FIBRILLATION
     Dosage: 2MG PER DAY
     Route: 048
     Dates: end: 20050815
  3. LEVOTHYROXINE [Concomitant]
     Indication: HYPOTHYROIDISM
     Dosage: 150MCG PER DAY
     Route: 048
  4. ATENOLOL [Concomitant]
     Indication: HYPERTENSION
     Dosage: 50MG IN THE MORNING
     Route: 048
     Dates: end: 20050815
  5. BENDROFLUMETHIAZIDE [Concomitant]
     Indication: HYPERTENSION
     Dosage: 2.5MG IN THE MORNING
     Route: 048
     Dates: end: 20050815
  6. VALSARTAN [Concomitant]
     Indication: HYPERTENSION
     Dosage: 80MG IN THE MORNING
     Route: 048
     Dates: end: 20050815
  7. ACETAMINOPHEN W/ CODEINE [Concomitant]
     Indication: PAIN
     Dosage: 2U TWICE PER DAY
     Route: 048

REACTIONS (2)
  - HYPOTENSION [None]
  - INTERNATIONAL NORMALISED RATIO INCREASED [None]
